FAERS Safety Report 24316145 (Version 1)
Quarter: 2024Q3

REPORT INFORMATION
  Report Type: Spontaneous
  Country: US (occurrence: US)
  Receive Date: 20240913
  Receipt Date: 20240913
  Transmission Date: 20241017
  Serious: No
  Sender: BAYER
  Company Number: US-BAYER-2024A130193

PATIENT

DRUGS (3)
  1. MIRALAX [Suspect]
     Active Substance: POLYETHYLENE GLYCOL 3350
     Indication: Gastrointestinal disorder
     Dosage: 2 DF
     Route: 048
     Dates: start: 20240905, end: 20240905
  2. MIRALAX [Suspect]
     Active Substance: POLYETHYLENE GLYCOL 3350
     Indication: Gastrointestinal disorder
     Dosage: 2 DF
     Dates: start: 20240906, end: 20240906
  3. MIRALAX [Suspect]
     Active Substance: POLYETHYLENE GLYCOL 3350
     Indication: Gastrointestinal disorder
     Dosage: 1 DF
     Route: 048
     Dates: start: 20240907, end: 20240907

REACTIONS (3)
  - Tremor [Unknown]
  - Dizziness [None]
  - Extra dose administered [None]
